FAERS Safety Report 7782822-2 (Version None)
Quarter: 2011Q3

REPORT INFORMATION
  Report Type: 
  Country: None (occurrence: None)
  Receive Date: 20110928
  Receipt Date: 20110913
  Transmission Date: 20111222
  Serious: Yes (Hospitalization)
  Sender: FDA-Public Use
  Company Number: DE-UCBSA-036846

PATIENT
  Sex: Female
  Weight: 67 kg

DRUGS (6)
  1. ENOXAPARIN SODIUM [Concomitant]
     Indication: THROMBOSIS PROPHYLAXIS
     Dates: start: 20110201
  2. PREDNISOLONE [Concomitant]
     Indication: RHEUMATOID ARTHRITIS
     Dates: start: 20060515
  3. CERTOLIZUMAB PEGOL [Suspect]
     Indication: RHEUMATOID ARTHRITIS
     Dosage: NUMBER OF DOSES RECEIVED: 22
     Route: 058
     Dates: start: 20100430, end: 20110202
  4. ARCOXIA [Concomitant]
     Indication: RHEUMATOID ARTHRITIS
     Dates: start: 20110207
  5. METHOTREXATE SODIUM [Concomitant]
     Indication: RHEUMATOID ARTHRITIS
     Dosage: QS
     Dates: start: 20050414
  6. TEBESIUM [Concomitant]
     Indication: ANTIBIOTIC PROPHYLAXIS
     Dates: start: 20100506, end: 20110201

REACTIONS (3)
  - PELVIC FRACTURE [None]
  - POSTOPERATIVE WOUND INFECTION [None]
  - JOINT ARTHROPLASTY [None]
